FAERS Safety Report 24343177 (Version 1)
Quarter: 2024Q3

REPORT INFORMATION
  Report Type: Spontaneous
  Country: US (occurrence: US)
  Receive Date: 20240920
  Receipt Date: 20240920
  Transmission Date: 20241016
  Serious: No
  Sender: BRAEBURN PHARMACEUTICALS
  Company Number: US-BRAEBURN-US-BRA-24-000652

PATIENT
  Age: 28 Year
  Sex: Male

DRUGS (1)
  1. BRIXADI [Suspect]
     Active Substance: BUPRENORPHINE
     Indication: Drug dependence
     Dosage: 128 MILLIGRAM
     Route: 065
     Dates: start: 20240322, end: 20240712

REACTIONS (2)
  - Therapeutic response shortened [Unknown]
  - Withdrawal syndrome [Unknown]

NARRATIVE: CASE EVENT DATE: 20240712
